FAERS Safety Report 20645762 (Version 3)
Quarter: 2023Q2

REPORT INFORMATION
  Report Type: Other
  Country: AU (occurrence: None)
  Receive Date: 20220328
  Receipt Date: 20230501
  Transmission Date: 20230721
  Serious: Yes (Other)
  Sender: FDA-Public Use
  Company Number: AU-ROCHE-3050753

PATIENT
  Age: 50 Year
  Sex: Male

DRUGS (3)
  1. OCREVUS [Suspect]
     Active Substance: OCRELIZUMAB
     Indication: Relapsing-remitting multiple sclerosis
     Dosage: CURRENTLY HAVING 2X300MG INTRO DOSE 2 WEEKS APART?2 ND INFUSION ON 29/AUG/2022. SCHEDULED TO OCCUR O
     Route: 041
     Dates: start: 20210314
  2. OCREVUS [Suspect]
     Active Substance: OCRELIZUMAB
     Dosage: PT CURRENTLY HAVING 2X300MG INTRO DOSE 2 WEEKS APART.
     Route: 041
     Dates: start: 20220314
  3. BACLOFEN [Concomitant]
     Active Substance: BACLOFEN

REACTIONS (7)
  - Multiple sclerosis relapse [Recovered/Resolved]
  - Multiple sclerosis [Unknown]
  - Fatigue [Not Recovered/Not Resolved]
  - Muscular weakness [Not Recovered/Not Resolved]
  - Body temperature increased [Recovered/Resolved]
  - Product dose omission issue [Unknown]
  - Medication error [Unknown]

NARRATIVE: CASE EVENT DATE: 20220314
